FAERS Safety Report 18236200 (Version 4)
Quarter: 2020Q3

REPORT INFORMATION
  Report Type: Report from Study
  Country: US (occurrence: US)
  Receive Date: 20200906
  Receipt Date: 20200923
  Transmission Date: 20201103
  Serious: Yes (Hospitalization)
  Sender: FDA-Public Use
  Company Number: US-ROCHE-2663691

PATIENT
  Age: 53 Year
  Sex: Male
  Weight: 73 kg

DRUGS (43)
  1. ACETAMINOPHEN. [Concomitant]
     Active Substance: ACETAMINOPHEN
     Indication: INFLUENZA LIKE ILLNESS
     Dates: start: 20160211, end: 20160218
  2. ACETAMINOPHEN. [Concomitant]
     Active Substance: ACETAMINOPHEN
     Indication: BACK PAIN
     Dates: start: 20150813, end: 20151215
  3. ACETAMINOPHEN. [Concomitant]
     Active Substance: ACETAMINOPHEN
     Route: 048
     Dates: start: 20131022
  4. ASTRAGALUS [Concomitant]
     Dosage: 80DROPS
     Dates: start: 20181101
  5. BACLOFEN. [Concomitant]
     Active Substance: BACLOFEN
     Dates: start: 20180223, end: 20180810
  6. BACLOFEN. [Concomitant]
     Active Substance: BACLOFEN
     Dates: start: 20170627, end: 20170704
  7. PROTANDIM [Concomitant]
     Active Substance: DIETARY SUPPLEMENT
     Dates: start: 20181021
  8. PROTANDIM [Concomitant]
     Active Substance: DIETARY SUPPLEMENT
     Dates: start: 20150822, end: 20160415
  9. OCRELIZUMAB. [Suspect]
     Active Substance: OCRELIZUMAB
     Dosage: 18/FEB/2016, 05/JAN/2017, 26/JAN/2017, 26/JUN/2017, 11/JUL/2017
     Route: 042
     Dates: start: 20160205
  10. METHYLPREDNISOLONE. [Concomitant]
     Active Substance: METHYLPREDNISOLONE
     Indication: PNEUMONIA
     Dosage: 14/NOV/2012, 27/NOV/2012, 01/MAY/2013, 16/MAY/2013, 22/OCT/2013, 05/NOV/2013, 16/APR/2014, 01/OCT/20
  11. BACLOFEN. [Concomitant]
     Active Substance: BACLOFEN
     Dates: start: 20191214
  12. MELATONIN [Concomitant]
     Active Substance: MELATONIN
     Indication: INSOMNIA
     Dates: start: 20190101
  13. PROTANDIM [Concomitant]
     Active Substance: DIETARY SUPPLEMENT
     Indication: FATIGUE
     Dates: start: 20120801, end: 20150814
  14. DIPHENHYDRAMINE. [Concomitant]
     Active Substance: DIPHENHYDRAMINE
     Dosage: 14/NOV/2012, 27/NOV/2012, 01/MAY/2013, 16/MAY/2013, 05/NOV/2013, 16/APR/2014, 01/OCT/2014, 02/APR/20
  15. BACLOFEN. [Concomitant]
     Active Substance: BACLOFEN
     Indication: MUSCLE SPASMS
     Dates: start: 20180811, end: 20181230
  16. BACLOFEN. [Concomitant]
     Active Substance: BACLOFEN
     Dates: start: 20171230, end: 20180222
  17. FOLIC ACID. [Concomitant]
     Active Substance: FOLIC ACID
     Dates: start: 20110501
  18. PROTANDIM [Concomitant]
     Active Substance: DIETARY SUPPLEMENT
     Dates: start: 20150815, end: 20150821
  19. SUPER OMEGA 3 (UNITED STATES) [Concomitant]
     Dates: start: 20111101
  20. VITAMIN B6 [Concomitant]
     Active Substance: PYRIDOXINE HYDROCHLORIDE
     Dates: start: 20130901
  21. OCRELIZUMAB. [Suspect]
     Active Substance: OCRELIZUMAB
     Dosage: 01/MAY/2013, 16/MAY/2013, 22/OCT/2013, 05/NOV/2013, 16/APR/2014, 01/OCT/2014, 02/APR/2014, 17/SEP/20
     Route: 042
     Dates: end: 20160204
  22. BENADRYL [Concomitant]
     Active Substance: DIPHENHYDRAMINE HYDROCHLORIDE
     Dates: start: 20160908, end: 20161027
  23. DIPHENHYDRAMINE. [Concomitant]
     Active Substance: DIPHENHYDRAMINE
     Route: 048
     Dates: start: 20131022
  24. ARNICA CREAM [Concomitant]
     Dosage: 1 OTHER, INCH
     Dates: start: 20140508
  25. BACLOFEN. [Concomitant]
     Active Substance: BACLOFEN
     Dates: start: 20190115, end: 20191213
  26. ELDERBERRY [Concomitant]
     Active Substance: HERBALS
     Dosage: 2 TEASPOONS
     Dates: start: 2015
  27. OCRELIZUMAB. [Suspect]
     Active Substance: OCRELIZUMAB
     Indication: PRIMARY PROGRESSIVE MULTIPLE SCLEROSIS
     Route: 042
     Dates: start: 20160805
  28. ACETAMINOPHEN. [Concomitant]
     Active Substance: ACETAMINOPHEN
     Indication: HEADACHE
     Dosage: 14/NOV/2012, 27/NOV/2012, 01/MAY/2013, 16/MAY/2013, 05/NOV/2013, 16/APR/2014, 01/OCT/2014, 02/APR/20
  29. ACETAMINOPHEN. [Concomitant]
     Active Substance: ACETAMINOPHEN
     Indication: RESPIRATORY SYMPTOM
     Dates: start: 20050701, end: 20140322
  30. METHYLPREDNISOLONE. [Concomitant]
     Active Substance: METHYLPREDNISOLONE
     Dates: start: 20171226, end: 20171226
  31. BACLOFEN. [Concomitant]
     Active Substance: BACLOFEN
     Dates: start: 20171223, end: 20171229
  32. OCRELIZUMAB. [Suspect]
     Active Substance: OCRELIZUMAB
     Dosage: 07/DEC/2017, 25/MAY/2018, 09/NOV/2018, 26/APR/2019, 10/OCT/2019
     Route: 042
  33. OCRELIZUMAB. [Suspect]
     Active Substance: OCRELIZUMAB
     Route: 042
     Dates: start: 20160721
  34. OCRELIZUMAB. [Suspect]
     Active Substance: OCRELIZUMAB
     Indication: PRIMARY PROGRESSIVE MULTIPLE SCLEROSIS
     Dosage: 14/NOV/2012, 27/NOV/2012
     Route: 042
  35. PROTANDIM [Concomitant]
     Active Substance: DIETARY SUPPLEMENT
     Dates: start: 20170615, end: 20170915
  36. RHODIOLA [Concomitant]
     Active Substance: HERBALS
     Dates: start: 20181101
  37. TAMSULOSIN [Concomitant]
     Active Substance: TAMSULOSIN
     Indication: NEUROGENIC BLADDER
     Dates: start: 20140508
  38. ACETAMINOPHEN. [Concomitant]
     Active Substance: ACETAMINOPHEN
     Indication: PYREXIA
     Dates: start: 20140901
  39. ACETAMINOPHEN. [Concomitant]
     Active Substance: ACETAMINOPHEN
     Dates: start: 20140323, end: 20140331
  40. ACETAMINOPHEN. [Concomitant]
     Active Substance: ACETAMINOPHEN
     Dates: start: 20130511, end: 20130626
  41. BENADRYL [Concomitant]
     Active Substance: DIPHENHYDRAMINE HYDROCHLORIDE
     Dosage: 22/OCT/2013, 25/MAY/2018
  42. METHYLPREDNISOLONE. [Concomitant]
     Active Substance: METHYLPREDNISOLONE
     Dates: start: 20171226, end: 20171227
  43. PROTANDIM [Concomitant]
     Active Substance: DIETARY SUPPLEMENT
     Dates: start: 20160416, end: 20170401

REACTIONS (1)
  - Appendicitis [Recovered/Resolved]

NARRATIVE: CASE EVENT DATE: 20200719
